FAERS Safety Report 7529567-1 (Version None)
Quarter: 2011Q2

REPORT INFORMATION
  Report Type: 
  Country: None (occurrence: None)
  Receive Date: 20110531
  Receipt Date: 20110516
  Transmission Date: 20111010
  Serious: Yes (Hospitalization)
  Sender: FDA-Public Use
  Company Number: AUR-APL-2011-01731

PATIENT
  Age: 45 Year
  Sex: Female

DRUGS (11)
  1. PANTROPRAZOLE [Concomitant]
  2. SLIDING-SCALE DOSED REGULAR INSULIN [Concomitant]
  3. METHIMAZOLE [Suspect]
     Indication: HYPERTHYROIDISM
     Dosage: 10MG, BID,
  4. ACETAMINOPHEN [Concomitant]
  5. ALENDRONATE SODIUM [Concomitant]
  6. FEXOFENADINE [Concomitant]
  7. PROPHYPHENE [Concomitant]
  8. IPRATROPIUM BROMIDE [Concomitant]
  9. OXYGEN [Concomitant]
  10. ATENOLOL [Concomitant]
  11. LEVETIRACETAM [Suspect]
     Indication: CONVULSION
     Dosage: 500 MG, BID;

REACTIONS (3)
  - ACUTE GENERALISED EXANTHEMATOUS PUSTULOSIS [None]
  - RESPIRATORY FAILURE [None]
  - SEPTIC SHOCK [None]
